FAERS Safety Report 10676534 (Version 1)
Quarter: 2014Q4

REPORT INFORMATION
  Report Type: Spontaneous
  Country: US (occurrence: US)
  Receive Date: 20141226
  Receipt Date: 20141226
  Transmission Date: 20150529
  Serious: No
  Sender: FDA-Public Use
  Company Number: US-BAYER-2014-188959

PATIENT
  Age: 64 Year
  Sex: Male

DRUGS (2)
  1. ULTRAVIST [Suspect]
     Active Substance: IOPROMIDE
     Indication: ADRENAL MASS
     Dosage: 50 ML, ONCE
     Route: 042
     Dates: start: 20141212, end: 20141212
  2. ULTRAVIST [Suspect]
     Active Substance: IOPROMIDE
     Indication: ADRENAL MASS
     Dosage: 100 ML, ONCE
     Route: 042
     Dates: start: 20141212, end: 20141212

REACTIONS (1)
  - Urticaria [None]

NARRATIVE: CASE EVENT DATE: 20141212
